FAERS Safety Report 10766128 (Version 2)
Quarter: 2015Q1

REPORT INFORMATION
  Report Type: Spontaneous
  Country: US (occurrence: US)
  Receive Date: 20150205
  Receipt Date: 20150226
  Transmission Date: 20150721
  Serious: No
  Sender: FDA-Public Use
  Company Number: US-ALLERGAN-1501901US

PATIENT
  Age: 79 Year
  Sex: Female

DRUGS (3)
  1. REFRESH OPTIVE [Concomitant]
     Active Substance: CARBOXYMETHYLCELLULOSE SODIUM\GLYCERIN
  2. RESTASIS [Suspect]
     Active Substance: CYCLOSPORINE
     Indication: DRY EYE
     Dosage: 1 OR 2 GTTS, BID
     Route: 047
  3. LIQUIGEL [Concomitant]

REACTIONS (4)
  - Arterial occlusive disease [Unknown]
  - Eye irritation [Unknown]
  - Inappropriate schedule of drug administration [Unknown]
  - Dizziness [Unknown]

NARRATIVE: CASE EVENT DATE: 20141216
